FAERS Safety Report 17382177 (Version 1)
Quarter: 2020Q1

REPORT INFORMATION
  Report Type: Spontaneous
  Country: US (occurrence: US)
  Receive Date: 20200206
  Receipt Date: 20200206
  Transmission Date: 20200409
  Serious: No
  Sender: FDA-Public Use
  Company Number: US-SA-2020SA027531

PATIENT
  Sex: Male

DRUGS (1)
  1. DUPIXENT [Suspect]
     Active Substance: DUPILUMAB
     Indication: DERMATITIS ATOPIC
     Dosage: 300 MG, QOW
     Route: 058
     Dates: start: 20191126, end: 20191126

REACTIONS (5)
  - Ocular hyperaemia [Unknown]
  - Photophobia [Unknown]
  - Eye irritation [Unknown]
  - Lacrimation increased [Unknown]
  - Dry eye [Unknown]
